FAERS Safety Report 8513202-X (Version None)
Quarter: 2012Q3

REPORT INFORMATION
  Report Type: 
  Country: None (occurrence: None)
  Receive Date: 20120716
  Receipt Date: 20120703
  Transmission Date: 20120928
  Serious: No
  Sender: FDA-Public Use
  Company Number: US-ASTRAZENECA-2012SE40707

PATIENT
  Age: 42 Year
  Sex: Male
  Weight: 68 kg

DRUGS (19)
  1. KLONOPIN [Suspect]
     Route: 065
  2. TYLENOL W COD [Concomitant]
  3. SEROQUEL [Suspect]
     Route: 048
  4. VICODIN [Concomitant]
  5. SEROQUEL [Suspect]
     Route: 048
  6. SEROQUEL [Suspect]
     Route: 048
  7. SEROQUEL [Suspect]
     Route: 048
  8. SEROQUEL [Suspect]
     Route: 048
  9. SEROQUEL [Suspect]
     Indication: BIPOLAR DISORDER
     Route: 048
  10. SEROQUEL [Suspect]
     Dosage: 200 MG SAMPLES WITH THE DOCTOR'S INSTRUCTIONS TO CUT IN HALF
     Route: 048
  11. SEROQUEL [Suspect]
     Dosage: 200 MG SAMPLES WITH THE DOCTOR'S INSTRUCTIONS TO CUT IN HALF
     Route: 048
  12. TYLENOL III [Concomitant]
  13. SEROQUEL [Suspect]
     Route: 048
  14. SEROQUEL [Suspect]
     Route: 048
  15. ASPIRIN [Concomitant]
  16. SEROQUEL [Suspect]
     Indication: MANIA
     Route: 048
  17. SEROQUEL [Suspect]
     Route: 048
  18. SEROQUEL [Suspect]
     Route: 048
  19. SEROQUEL [Suspect]
     Route: 048

REACTIONS (13)
  - FEELINGS OF WORTHLESSNESS [None]
  - DEPRESSED MOOD [None]
  - CRYING [None]
  - MANIA [None]
  - INTENTIONAL DRUG MISUSE [None]
  - DRUG INEFFECTIVE [None]
  - INSOMNIA [None]
  - MOBILITY DECREASED [None]
  - INTERVERTEBRAL DISC DEGENERATION [None]
  - INTERVERTEBRAL DISC PROTRUSION [None]
  - INJURY [None]
  - BIPOLAR I DISORDER [None]
  - DRUG DOSE OMISSION [None]
